FAERS Safety Report 6825877-1 (Version None)
Quarter: 2010Q3

REPORT INFORMATION
  Report Type: 
  Country: None (occurrence: None)
  Receive Date: 20100707
  Receipt Date: 20100707
  Transmission Date: 20110219
  Serious: No
  Sender: FDA-Public Use
  Company Number: None

PATIENT
  Sex: Female
  Weight: 63.5036 kg

DRUGS (2)
  1. NITROGLYCERIN [Suspect]
     Indication: CARDIAC DISORDER
     Dosage: 1 A DAY
     Dates: start: 20100209
  2. NITROGLYCERIN [Suspect]
     Indication: CARDIAC DISORDER
     Dosage: 1 A DAY
     Dates: start: 20100624

REACTIONS (2)
  - JOINT SWELLING [None]
  - OEDEMA PERIPHERAL [None]
